FAERS Safety Report 9069103 (Version 1)
Quarter: 2013Q1

REPORT INFORMATION
  Report Type: Spontaneous
  Country: GB (occurrence: None)
  Receive Date: 20130122
  Receipt Date: 20130122
  Transmission Date: 20140127
  Serious: Yes (Hospitalization)
  Sender: FDA-Public Use
  Company Number: 1559867

PATIENT
  Age: 53 Year
  Sex: Male
  Weight: 31.3 kg

DRUGS (4)
  1. CALCIUM FOLINATE [Suspect]
     Indication: COLORECTAL CANCER METASTATIC
     Dosage: UNKNOWN, UNKNOWN, UNKNOWN
  2. IRINOTECAN HYDROCHLORIDE [Suspect]
     Indication: COLORECTAL CANCER METASTATIC
     Dosage: UNKNOWN, UNKNOWN, UNKNOWN
  3. FLUOROURACIL [Suspect]
     Indication: COLORECTAL CANCER METASTATIC
     Dosage: UNKNOWN, UNKNOWN, UNKNOWN
  4. ELOXATIN [Suspect]
     Indication: COLORECTAL CANCER METASTATIC

REACTIONS (2)
  - Pyrexia [None]
  - Hydrocele [None]
